FAERS Safety Report 6227413-X (Version None)
Quarter: 2009Q2

REPORT INFORMATION
  Report Type: 
  Country: None (occurrence: None)
  Receive Date: 20090610
  Receipt Date: 20090610
  Transmission Date: 20091009
  Serious: Yes (Other)
  Sender: FDA-Public Use
  Company Number: None

PATIENT
  Sex: Female
  Weight: 54.4316 kg

DRUGS (1)
  1. PROTOPIC OINTMENT ASTELLAS PHARMA [Suspect]
     Indication: ECZEMA
     Dosage: DAILY TOP
     Route: 061
     Dates: start: 20010113, end: 20060123

REACTIONS (1)
  - B-CELL LYMPHOMA STAGE III [None]
